FAERS Safety Report 9208841 (Version 2)
Quarter: 2013Q3

REPORT INFORMATION
  Report Type: Spontaneous
  Country: US (occurrence: None)
  Receive Date: 20120817
  Receipt Date: 20130815
  Transmission Date: 20140515
  Serious: Yes (Other)
  Sender: FDA-Public Use
  Company Number: ADR-2012-00511

PATIENT
  Sex: Male

DRUGS (2)
  1. BACLOFEN INTRATHECAL(BACLOFEN INJECTION) [Suspect]
     Indication: MUSCLE SPASTICITY
     Dosage: UNK
  2. BACLOFEN INTRATHECAL(BACLOFEN INJECTION) [Suspect]
     Indication: CEREBRAL PALSY
     Dosage: UNK

REACTIONS (7)
  - Lethargy [None]
  - Fatigue [None]
  - Incorrect route of drug administration [None]
  - Vomiting [None]
  - Overdose [None]
  - Malaise [None]
  - Implant site swelling [None]
